FAERS Safety Report 7591155-9 (Version None)
Quarter: 2011Q3

REPORT INFORMATION
  Report Type: 
  Country: None (occurrence: None)
  Receive Date: 20110705
  Receipt Date: 20110628
  Transmission Date: 20111222
  Serious: Yes (Death)
  Sender: FDA-Public Use
  Company Number: US-ASTRAZENECA-2011SE38714

PATIENT
  Age: 74 Year
  Sex: Male

DRUGS (3)
  1. SEROQUEL XR [Suspect]
     Indication: INSOMNIA
     Route: 048
  2. SEROQUEL XR [Suspect]
     Route: 048
     Dates: end: 20110101
  3. CRESTOR [Suspect]
     Route: 048
     Dates: end: 20110101

REACTIONS (2)
  - DEMENTIA ALZHEIMER'S TYPE [None]
  - OFF LABEL USE [None]
